FAERS Safety Report 9413986 (Version 1)
Quarter: 2013Q3

REPORT INFORMATION
  Report Type: Spontaneous
  Country: US (occurrence: US)
  Receive Date: 20130723
  Receipt Date: 20130723
  Transmission Date: 20140515
  Serious: No
  Sender: FDA-Public Use
  Company Number: US-BIOGENIDEC-2013BI066887

PATIENT
  Sex: Female

DRUGS (2)
  1. TYSABRI [Suspect]
     Indication: MULTIPLE SCLEROSIS
     Route: 042
     Dates: start: 20080521
  2. AVONEX [Concomitant]
     Indication: MULTIPLE SCLEROSIS
     Route: 030
     Dates: start: 20030914

REACTIONS (7)
  - Musculoskeletal discomfort [Recovered/Resolved]
  - Stress [Unknown]
  - Crying [Recovered/Resolved]
  - Depressed mood [Unknown]
  - Gait disturbance [Unknown]
  - Hypotension [Not Recovered/Not Resolved]
  - Herpes zoster [Recovered/Resolved]
